FAERS Safety Report 10150071 (Version 2)
Quarter: 2015Q1

REPORT INFORMATION
  Report Type: Spontaneous
  Country: IT (occurrence: IT)
  Receive Date: 20140502
  Receipt Date: 20140502
  Transmission Date: 20150720
  Serious: Yes (Hospitalization)
  Sender: FDA-Public Use
  Company Number: IT-WATSON-2014-08651

PATIENT
  Age: 45 Year
  Sex: Male

DRUGS (3)
  1. EN [Suspect]
     Active Substance: DELORAZEPAM
     Indication: INTENTIONAL SELF-INJURY
     Dosage: 40 ML, TOTAL
     Route: 048
     Dates: start: 20140208, end: 20140208
  2. ALPRAZOLAM (UNKNOWN) [Suspect]
     Active Substance: ALPRAZOLAM
     Indication: INTENTIONAL SELF-INJURY
     Dosage: 80 ML, TOTAL
     Route: 048
     Dates: start: 20140208, end: 20140208
  3. CITALOPRAM [Suspect]
     Active Substance: CITALOPRAM HYDROBROMIDE
     Indication: INTENTIONAL SELF-INJURY
     Dosage: 20 ML, TOTAL
     Route: 048
     Dates: start: 20140208, end: 20140208

REACTIONS (3)
  - Drug abuse [Recovering/Resolving]
  - Sopor [Recovering/Resolving]
  - Intentional self-injury [Recovering/Resolving]

NARRATIVE: CASE EVENT DATE: 20140208
